FAERS Safety Report 5012092-X (Version None)
Quarter: 2006Q2

REPORT INFORMATION
  Report Type: 
  Country: None (occurrence: None)
  Receive Date: 20060526
  Receipt Date: 20060202
  Transmission Date: 20061013
  Serious: Yes (Death, Life-Threatening, Hospitalization)
  Sender: FDA-Public Use
  Company Number: US-BRISTOL-MYERS SQUIBB COMPANY-13323415

PATIENT
  Age: 57 Year
  Sex: Female
  Weight: 55 kg

DRUGS (10)
  1. ERBITUX [Suspect]
     Indication: NON-SMALL CELL LUNG CANCER
     Dosage: 12TH DOSE. THERAPY START DATE 26-OCT-05.
     Route: 042
     Dates: start: 20060118, end: 20060118
  2. TAXOTERE [Suspect]
     Indication: NON-SMALL CELL LUNG CANCER
     Dosage: THERAPY START DATE 26-OCT-05 TO 04-JAN-06.
     Dates: start: 20060104, end: 20060104
  3. TAXOTERE [Suspect]
     Indication: BREAST CANCER
     Dosage: THERAPY START DATE 26-OCT-05 TO 04-JAN-06.
     Dates: start: 20060104, end: 20060104
  4. CARBOPLATIN [Concomitant]
     Indication: BREAST CANCER
     Dates: start: 20051101
  5. FENTANYL [Concomitant]
  6. ENDOCET [Concomitant]
  7. PHENERGAN HCL [Concomitant]
  8. LEXAPRO [Concomitant]
  9. PROTONIX [Concomitant]
  10. MORPHINE [Concomitant]
     Dosage: 1-2 MG IV EVERY 1 HOUR AS NEEDED

REACTIONS (4)
  - DEEP VEIN THROMBOSIS [None]
  - HYPOXIA [None]
  - PNEUMONITIS [None]
  - RESPIRATORY FAILURE [None]
